FAERS Safety Report 8481584-3 (Version None)
Quarter: 2012Q3

REPORT INFORMATION
  Report Type: 
  Country: None (occurrence: None)
  Receive Date: 20120702
  Receipt Date: 20120620
  Transmission Date: 20120928
  Serious: Yes (Other)
  Sender: FDA-Public Use
  Company Number: US-AMGEN-USASP2012038278

PATIENT
  Sex: Female

DRUGS (4)
  1. ENBREL [Suspect]
     Indication: RHEUMATOID ARTHRITIS
     Dosage: 50 MG, QWK
  2. HUMIRA [Concomitant]
     Dosage: UNK
  3. PREDNISONE TAB [Concomitant]
     Dosage: UNK
  4. DOXYCYCLINE HYCLATE [Concomitant]
     Dosage: UNK

REACTIONS (5)
  - VISION BLURRED [None]
  - ULCERATIVE KERATITIS [None]
  - DRY EYE [None]
  - INFECTION [None]
  - MUSCLE SPASMS [None]
